FAERS Safety Report 11895566 (Version 2)
Quarter: 2016Q1

REPORT INFORMATION
  Report Type: Spontaneous
  Country: FR (occurrence: FR)
  Receive Date: 20160107
  Receipt Date: 20160201
  Transmission Date: 20160526
  Serious: Yes (Hospitalization, Other)
  Sender: FDA-Public Use
  Company Number: FR-PFIZER INC-2015474797

PATIENT
  Age: 35 Year
  Sex: Female

DRUGS (8)
  1. EXACYL [Suspect]
     Active Substance: TRANEXAMIC ACID
     Dosage: 1 G, SINGLE
     Route: 042
     Dates: start: 20151031, end: 20151031
  2. EPHEDRINE. [Concomitant]
     Active Substance: EPHEDRINE
     Dosage: 18 MG (2 X 9 MG), SINGLE
     Route: 040
     Dates: start: 20151031, end: 20151031
  3. CYTOTEC [Suspect]
     Active Substance: MISOPROSTOL
     Indication: LABOUR INDUCTION
     Dosage: 2 DF, 2X/DAY
     Route: 067
     Dates: start: 20151031, end: 20151031
  4. XYLOCAINE [Concomitant]
     Active Substance: LIDOCAINE HYDROCHLORIDE
     Dosage: 5 CC SINGLE
     Dates: start: 20151031, end: 20151031
  5. CLAMOXYL /00249601/ [Concomitant]
     Active Substance: AMOXICILLIN
     Dosage: 2 G, SINGLE
     Dates: start: 20151031, end: 20151031
  6. NEOSYNEPHRINE [Concomitant]
     Active Substance: PHENYLEPHRINE HYDROCHLORIDE
     Dosage: 2 DF, UNK
     Route: 040
     Dates: start: 20151031, end: 20151031
  7. VITAMIN D /00107901/ [Concomitant]
     Active Substance: ERGOCALCIFEROL
  8. PARACETAMOL [Concomitant]
     Active Substance: ACETAMINOPHEN
     Dosage: 1 G, SINGLE
     Dates: start: 20151031, end: 20151031

REACTIONS (4)
  - Shock [Unknown]
  - Ischaemic stroke [Unknown]
  - Product use issue [Unknown]
  - Uterine rupture [Unknown]

NARRATIVE: CASE EVENT DATE: 20151031
